FAERS Safety Report 25580750 (Version 1)
Quarter: 2025Q3

REPORT INFORMATION
  Report Type: Spontaneous
  Country: US (occurrence: US)
  Receive Date: 20250718
  Receipt Date: 20250718
  Transmission Date: 20251020
  Serious: Yes (Other)
  Sender: NOVO NORDISK
  Company Number: US-NOVOPROD-1328395

PATIENT
  Sex: Female

DRUGS (4)
  1. WEGOVY [Suspect]
     Active Substance: SEMAGLUTIDE
     Indication: Overweight
     Route: 058
     Dates: start: 20241124
  2. WEGOVY [Suspect]
     Active Substance: SEMAGLUTIDE
     Indication: Thrombosis
  3. WEGOVY [Suspect]
     Active Substance: SEMAGLUTIDE
     Indication: Emphysema
  4. WEGOVY [Suspect]
     Active Substance: SEMAGLUTIDE
     Indication: Lung cyst

REACTIONS (4)
  - Nausea [Recovered/Resolved]
  - Vomiting [Recovered/Resolved]
  - Asthenia [Not Recovered/Not Resolved]
  - Off label use [Unknown]

NARRATIVE: CASE EVENT DATE: 20241124
